FAERS Safety Report 7669397-3 (Version None)
Quarter: 2011Q3

REPORT INFORMATION
  Report Type: 
  Country: None (occurrence: None)
  Receive Date: 20110808
  Receipt Date: 20110726
  Transmission Date: 20111222
  Serious: Yes (Death)
  Sender: FDA-Public Use
  Company Number: GB-UCBSA-037660

PATIENT
  Age: 67 Year
  Sex: Male

DRUGS (7)
  1. CALCITUDE D3 FORTE [Concomitant]
  2. OMEPRAZOLE [Concomitant]
  3. CIMZIA [Suspect]
     Indication: RHEUMATOID ARTHRITIS
     Route: 058
     Dates: start: 20110101, end: 20110602
  4. ALENDRONATE SODIUM [Concomitant]
  5. ACEMETACIN [Concomitant]
  6. LEFLUNOMIDE [Concomitant]
  7. ASCORBIC ACID [Concomitant]

REACTIONS (1)
  - PNEUMONITIS [None]
